FAERS Safety Report 9649035 (Version 2)
Quarter: 2014Q1

REPORT INFORMATION
  Report Type: Spontaneous
  Country: US (occurrence: None)
  Receive Date: 20131018
  Receipt Date: 20140122
  Transmission Date: 20141002
  Serious: Yes (Other)
  Sender: FDA-Public Use
  Company Number: AEGR000117

PATIENT
  Sex: Female

DRUGS (1)
  1. JUXTAPID [Suspect]
     Indication: TYPE IIA HYPERLIPIDAEMIA
     Route: 048
     Dates: start: 2013, end: 201308

REACTIONS (2)
  - Abdominal discomfort [None]
  - Diarrhoea [None]
